FAERS Safety Report 6614420-8 (Version None)
Quarter: 2010Q1

REPORT INFORMATION
  Report Type: 
  Country: None (occurrence: None)
  Receive Date: 20100304
  Receipt Date: 20100219
  Transmission Date: 20100710
  Serious: Yes (Hospitalization)
  Sender: FDA-Public Use
  Company Number: FR-ELI_LILLY_AND_COMPANY-FR201001003631

PATIENT
  Age: 78 Year
  Sex: Female
  Weight: 50 kg

DRUGS (5)
  1. FORTEO [Suspect]
     Indication: SPINAL FRACTURE
     Dosage: 20 UG, DAILY (1/D)
     Route: 058
     Dates: start: 20080901
  2. MODOPAR [Concomitant]
     Indication: PARKINSON'S DISEASE
     Dosage: UNK, UNKNOWN
     Route: 065
  3. ATACAND [Concomitant]
     Dosage: UNK, UNKNOWN
     Route: 065
  4. OROCAL [Concomitant]
     Dosage: UNK, UNKNOWN
     Route: 065
  5. LAROXYL [Concomitant]
     Dosage: UNK, UNKNOWN
     Route: 065

REACTIONS (3)
  - AUTONOMIC NERVOUS SYSTEM IMBALANCE [None]
  - DIZZINESS [None]
  - FALL [None]
